FAERS Safety Report 8722477 (Version 1)
Quarter: 2012Q4

REPORT INFORMATION
  Report Type: 
  Country: CN (occurrence: CN)
  Receive Date: 20120911
  Receipt Date: 20120911
  Transmission Date: 20130627
  Serious: No
  Sender: FDA-Public Use
  Company Number: CN-ASTRAZENECA-2012SE56645

PATIENT
  Age: 853 Month
  Sex: Male
  Weight: 68 kg

DRUGS (1)
  1. FELODIPINE [Suspect]
     Indication: HYPERTENSION
     Route: 048
     Dates: start: 20100915, end: 20100917

REACTIONS (2)
  - Thirst [Recovered/Resolved]
  - Oropharyngeal pain [Recovered/Resolved]
